FAERS Safety Report 4862748-4 (Version None)
Quarter: 2005Q4

REPORT INFORMATION
  Report Type: 
  Country: None (occurrence: None)
  Receive Date: 20051221
  Receipt Date: 20051116
  Transmission Date: 20060501
  Serious: Yes (Disabling)
  Sender: FDA-Public Use
  Company Number: 2005AP05995

PATIENT
  Age: 24450 Day
  Sex: Female
  Weight: 51.2 kg

DRUGS (2)
  1. ARIMIDEX [Suspect]
     Indication: BREAST CANCER
     Route: 048
     Dates: start: 20050727, end: 20051214
  2. CALBLOCK [Concomitant]
     Indication: HYPERTENSION
     Route: 048

REACTIONS (1)
  - RETINAL VEIN OCCLUSION [None]
